FAERS Safety Report 5834061-X (Version None)
Quarter: 2008Q3

REPORT INFORMATION
  Report Type: 
  Country: None (occurrence: None)
  Receive Date: 20080801
  Receipt Date: 20080801
  Transmission Date: 20090109
  Serious: Yes (Disabling)
  Sender: FDA-Public Use
  Company Number: None

PATIENT
  Sex: Female
  Weight: 61.2356 kg

DRUGS (1)
  1. LEVAQUIN [Suspect]

REACTIONS (4)
  - BRONCHITIS [None]
  - GAIT DISTURBANCE [None]
  - LIMB INJURY [None]
  - PAIN IN EXTREMITY [None]
